FAERS Safety Report 6677767-5 (Version None)
Quarter: 2010Q2

REPORT INFORMATION
  Report Type: 
  Country: None (occurrence: None)
  Receive Date: 20100412
  Receipt Date: 20100208
  Transmission Date: 20101027
  Serious: Yes (Hospitalization)
  Sender: FDA-Public Use
  Company Number: US-ALEXION-A200901072

PATIENT
  Sex: Female

DRUGS (9)
  1. SOLIRIS [Suspect]
     Indication: PAROXYSMAL NOCTURNAL HAEMOGLOBINURIA
     Dosage: 600 MG, QW X 4 WEEKS
     Route: 042
     Dates: start: 20081205
  2. SOLIRIS [Suspect]
     Dosage: 900 MG, UNK
     Route: 042
  3. GABAPENTIN [Concomitant]
     Dosage: 400 MG, TID
     Route: 048
  4. LEVOTHYROXINE SODIUM [Concomitant]
     Dosage: 200 UG, QD
     Route: 048
  5. WELLBUTRIN [Concomitant]
     Dosage: 100 MG, QD
     Route: 048
  6. VITAMIN B-12 [Concomitant]
  7. IRON [Concomitant]
  8. FOLIC ACID [Concomitant]
  9. TRAMADOL HCL [Concomitant]

REACTIONS (4)
  - CONCUSSION [None]
  - MUSCULOSKELETAL DISCOMFORT [None]
  - RECTAL HAEMORRHAGE [None]
  - THROMBOCYTOPENIA [None]
